FAERS Safety Report 26001443 (Version 1)
Quarter: 2025Q4

REPORT INFORMATION
  Report Type: Spontaneous
  Country: US (occurrence: US)
  Receive Date: 20251105
  Receipt Date: 20251105
  Transmission Date: 20260118
  Serious: No
  Sender: GUERBET
  Company Number: US-GUERBET / LLC-US-20250141

PATIENT
  Sex: Female

DRUGS (1)
  1. LIPIODOL [Suspect]
     Active Substance: ETHIODIZED OIL
     Indication: Lymphatic fistula
     Route: 027
     Dates: start: 2025, end: 2025

REACTIONS (2)
  - Iodine overload [Unknown]
  - Product use in unapproved indication [Unknown]

NARRATIVE: CASE EVENT DATE: 20250101
